FAERS Safety Report 7698979-8 (Version None)
Quarter: 2011Q3

REPORT INFORMATION
  Report Type: 
  Country: None (occurrence: None)
  Receive Date: 20110819
  Receipt Date: 20110804
  Transmission Date: 20111222
  Serious: Yes (Other)
  Sender: FDA-Public Use
  Company Number: US-BAYER-2011-070179

PATIENT
  Age: 50 Year
  Sex: Male
  Weight: 91 kg

DRUGS (5)
  1. ALEVE (CAPLET) [Suspect]
     Dosage: 2 DF, QD
     Route: 048
     Dates: start: 20110803, end: 20110804
  2. ALLEGRA [Concomitant]
  3. MULTI-VITAMIN [Concomitant]
  4. OMEPRAZOLE [Concomitant]
  5. ASTHMA MEDICATION [Concomitant]
     Indication: ASTHMA

REACTIONS (4)
  - FREQUENT BOWEL MOVEMENTS [None]
  - ABDOMINAL PAIN UPPER [None]
  - DIZZINESS [None]
  - DISORIENTATION [None]
